FAERS Safety Report 11281280 (Version 5)
Quarter: 2016Q1

REPORT INFORMATION
  Report Type: Report from Study
  Country: AT (occurrence: AT)
  Receive Date: 20150717
  Receipt Date: 20160322
  Transmission Date: 20160525
  Serious: Yes (Hospitalization, Other)
  Sender: FDA-Public Use
  Company Number: AT-INCYTE CORPORATION-2013IN002349

PATIENT
  Age: 72 Year
  Sex: Female
  Weight: 53 kg

DRUGS (89)
  1. XARELTO [Concomitant]
     Active Substance: RIVAROXABAN
     Indication: ANTICOAGULANT THERAPY
  2. EUTHYROX [Concomitant]
     Active Substance: LEVOTHYROXINE SODIUM
     Indication: PRODUCT USED FOR UNKNOWN INDICATION
     Dosage: 37.5 NG, QD
     Route: 065
     Dates: start: 20140306
  3. EUTHYROX [Concomitant]
     Active Substance: LEVOTHYROXINE SODIUM
     Dosage: 25 UG, UNK
     Route: 065
  4. UROSIN [Concomitant]
     Active Substance: ALLOPURINOL
     Dosage: 0.5 DF, MON, WED, FRI
  5. NEURONTIN [Concomitant]
     Active Substance: GABAPENTIN
     Dosage: 300 MG, QD
  6. CLYSMOL [Concomitant]
     Indication: ABDOMINAL PAIN
     Dosage: UNK
     Route: 065
  7. CLYSMOL [Concomitant]
     Dosage: 1 DF, BID
  8. JAKAFI [Suspect]
     Active Substance: RUXOLITINIB
     Dosage: 5 MG, BID, (2-0-1)
     Route: 048
     Dates: start: 20140717
  9. XARELTO [Concomitant]
     Active Substance: RIVAROXABAN
     Indication: THROMBOSIS PROPHYLAXIS
     Dosage: 15 MG, QD (1-0-0)
     Route: 065
     Dates: start: 20130805
  10. PANTOLOC//PANTOPRAZOLE SODIUM SESQUIHYDRATE [Concomitant]
     Active Substance: PANTOPRAZOLE SODIUM
     Indication: PRODUCT USED FOR UNKNOWN INDICATION
     Dosage: 40 MG, QD
     Route: 065
     Dates: start: 20130813
  11. OTRIVIN [Concomitant]
     Active Substance: XYLOMETAZOLINE
  12. DIABETEX [Concomitant]
     Dosage: 850 MG, QD
  13. DIABETEX [Concomitant]
     Dosage: 850 MG, QD
  14. NEXIUM [Concomitant]
     Active Substance: ESOMEPRAZOLE MAGNESIUM
     Dosage: 40 MG, QD (1-0-0)
     Route: 065
  15. NEXIUM [Concomitant]
     Active Substance: ESOMEPRAZOLE MAGNESIUM
     Dosage: 40 MG, QD (1-0-0)
  16. UROSIN [Concomitant]
     Active Substance: ALLOPURINOL
     Dosage: 300 MG, QD
  17. CLYSMOL [Concomitant]
     Indication: CONSTIPATION
     Dosage: 1 DF, BID
  18. CLYSMOL [Concomitant]
     Route: 065
  19. KEFLEX [Concomitant]
     Active Substance: CEPHALEXIN
  20. ALLOPURINOL. [Concomitant]
     Active Substance: ALLOPURINOL
     Dosage: 300 MG, ON EVEN DAYS
     Route: 065
  21. ALLOPURINOL. [Concomitant]
     Active Substance: ALLOPURINOL
     Dosage: 300 MG, ON EVEN DAYS
     Route: 065
  22. ALLOPURINOL. [Concomitant]
     Active Substance: ALLOPURINOL
     Dosage: 300 MG, ON EVEN DAYS
     Route: 065
  23. ALLOPURINOL. [Concomitant]
     Active Substance: ALLOPURINOL
     Dosage: 0.5 DF, QD
     Route: 065
  24. ALLOPURINOL. [Concomitant]
     Active Substance: ALLOPURINOL
     Dosage: 300 MG, ON EVEN DAYS
     Route: 065
  25. ALLOPURINOL. [Concomitant]
     Active Substance: ALLOPURINOL
     Dosage: 0.5 DF, QD
     Route: 065
  26. CALCIUM GLYCEROPHOSPHATE\CELLULOSE\POLYETHYLENE GLYCOL\SACCHARIN SODIUM\SODIUM HYDROXIDE\SODIUM LAURYL SULFATE\SODIUM MAGNESIUM SILICATE\SODIUM MONOFLUOROPHOSPHATE\SORBITOL\WATER [Concomitant]
     Active Substance: CALCIUM GLYCEROPHOSPHATE\POLYETHYLENE GLYCOLS\POWDERED CELLULOSE\SACCHARIN SODIUM DIHYDRATE\SODIUM HYDROXIDE\SODIUM LAURYL SULFATE\SODIUM MAGNESIUM SILICATE\SODIUM MONOFLUOROPHOSPHATE\SORBITOL\WATER
     Dosage: 1 DF, QD
  27. JAKAFI [Suspect]
     Active Substance: RUXOLITINIB
     Dosage: 5 MG, 2 DF, BID
     Route: 048
  28. BISOCOR [Concomitant]
     Active Substance: BISOPROLOL FUMARATE
     Indication: PRODUCT USED FOR UNKNOWN INDICATION
     Dosage: 5 MG, QD
     Route: 065
     Dates: start: 20141117
  29. OTRIVIN [Concomitant]
     Active Substance: XYLOMETAZOLINE
     Indication: RHINORRHOEA
     Dosage: 1 DF, TID
     Route: 065
  30. CLYSMOL [Concomitant]
     Route: 065
  31. CLYSMOL [Concomitant]
     Dosage: 1 DF, BID
  32. KEFLEX [Concomitant]
     Active Substance: CEPHALEXIN
     Indication: PRODUCT USED FOR UNKNOWN INDICATION
     Dosage: 1 DF, TID
     Route: 065
  33. ALLOPURINOL. [Concomitant]
     Active Substance: ALLOPURINOL
     Dosage: 300 MG, ON EVEN DAYS
     Route: 065
  34. ALLOPURINOL. [Concomitant]
     Active Substance: ALLOPURINOL
     Dosage: 300 MG, ON EVEN DAYS
     Route: 065
  35. ALLOPURINOL. [Concomitant]
     Active Substance: ALLOPURINOL
     Dosage: 0.5 DF, QD
     Route: 065
  36. METFORMIN [Concomitant]
     Active Substance: METFORMIN HYDROCHLORIDE
     Dosage: 850 MG, QD (0-0-1)
     Route: 065
  37. JAKAFI [Suspect]
     Active Substance: RUXOLITINIB
     Dosage: 15 MG, QD
     Route: 048
     Dates: start: 20130507, end: 20140716
  38. ZOLDEM [Concomitant]
     Active Substance: ZOLPIDEM TARTRATE
     Indication: PRODUCT USED FOR UNKNOWN INDICATION
     Dosage: 10 MG, QD
     Route: 065
     Dates: start: 20150118
  39. OTRIVIN [Concomitant]
     Active Substance: XYLOMETAZOLINE
  40. OTRIVIN [Concomitant]
     Active Substance: XYLOMETAZOLINE
  41. DIABETEX [Concomitant]
     Indication: PRODUCT USED FOR UNKNOWN INDICATION
     Dosage: 850 UNK, UNK
     Route: 065
  42. UROSIN [Concomitant]
     Active Substance: ALLOPURINOL
     Dosage: 0.5 DF, ON EVEN DAY
     Route: 065
  43. UROSIN [Concomitant]
     Active Substance: ALLOPURINOL
     Dosage: 0.5 DF, ON EVEN DAY
     Route: 065
  44. AUGMENTIN [Concomitant]
     Active Substance: AMOXICILLIN\CLAVULANATE POTASSIUM
     Dosage: 1 G, QD (3X1)
  45. ALLOPURINOL. [Concomitant]
     Active Substance: ALLOPURINOL
     Dosage: 0.5 DF, QD
     Route: 065
  46. METFORMIN [Concomitant]
     Active Substance: METFORMIN HYDROCHLORIDE
     Indication: PRODUCT USED FOR UNKNOWN INDICATION
     Dosage: 850 MG, QD (0-0-1)
     Route: 065
  47. DIOVAN [Concomitant]
     Active Substance: VALSARTAN
     Indication: HYPERTENSION
     Dosage: 160 MG, QD (1-0-0)
     Route: 065
     Dates: start: 20111116
  48. AMLODIPINE [Concomitant]
     Active Substance: AMLODIPINE BESYLATE
     Indication: HYPERTENSION
     Dosage: 5 MG, QD (1-0-0)
     Route: 065
     Dates: start: 20130805
  49. DIABETEX [Concomitant]
     Dosage: 850 MG, QD
  50. UROSIN [Concomitant]
     Active Substance: ALLOPURINOL
     Dosage: 0.5 DF, ON EVEN DAY
     Route: 065
  51. NEURONTIN [Concomitant]
     Active Substance: GABAPENTIN
     Indication: CHEST PAIN
     Dosage: UNK
     Route: 065
  52. NEURONTIN [Concomitant]
     Active Substance: GABAPENTIN
     Dosage: 300 MG, QD
  53. CLYSMOL [Concomitant]
     Dosage: 1 DF, BID
  54. XANOR [Concomitant]
     Active Substance: ALPRAZOLAM
     Indication: PRODUCT USED FOR UNKNOWN INDICATION
     Dosage: 0.5 MG, QD
     Route: 065
  55. XEFO [Concomitant]
     Active Substance: LORNOXICAM
     Indication: PAIN
     Dosage: 8 MG, IN CASE OF PAIN
     Route: 065
  56. CALCIUM GLYCEROPHOSPHATE\CELLULOSE\POLYETHYLENE GLYCOL\SACCHARIN SODIUM\SODIUM HYDROXIDE\SODIUM LAURYL SULFATE\SODIUM MAGNESIUM SILICATE\SODIUM MONOFLUOROPHOSPHATE\SORBITOL\WATER [Concomitant]
     Active Substance: CALCIUM GLYCEROPHOSPHATE\POLYETHYLENE GLYCOLS\POWDERED CELLULOSE\SACCHARIN SODIUM DIHYDRATE\SODIUM HYDROXIDE\SODIUM LAURYL SULFATE\SODIUM MAGNESIUM SILICATE\SODIUM MONOFLUOROPHOSPHATE\SORBITOL\WATER
     Dosage: 1 DF, QD
  57. OTRIVIN [Concomitant]
     Active Substance: XYLOMETAZOLINE
     Dosage: 1 DF, TID
     Route: 065
  58. UROSIN [Concomitant]
     Active Substance: ALLOPURINOL
     Dosage: 300 MG, QD
  59. UROSIN [Concomitant]
     Active Substance: ALLOPURINOL
     Dosage: 0.5 DF, MON, WED, FRI
  60. UROSIN [Concomitant]
     Active Substance: ALLOPURINOL
     Dosage: 0.5 DF, ON EVEN DAY
     Route: 065
  61. NEURONTIN [Concomitant]
     Active Substance: GABAPENTIN
     Dosage: 300 MG, QD
  62. AUGMENTIN [Concomitant]
     Active Substance: AMOXICILLIN\CLAVULANATE POTASSIUM
     Indication: PRODUCT USED FOR UNKNOWN INDICATION
     Dosage: 1 G (3X1)
     Route: 065
  63. ALLOPURINOL. [Concomitant]
     Active Substance: ALLOPURINOL
     Dosage: 300 MG, ON EVEN DAYS
     Route: 065
  64. CALCIUM GLYCEROPHOSPHATE\CELLULOSE\POLYETHYLENE GLYCOL\SACCHARIN SODIUM\SODIUM HYDROXIDE\SODIUM LAURYL SULFATE\SODIUM MAGNESIUM SILICATE\SODIUM MONOFLUOROPHOSPHATE\SORBITOL\WATER [Concomitant]
     Active Substance: CALCIUM GLYCEROPHOSPHATE\POLYETHYLENE GLYCOLS\POWDERED CELLULOSE\SACCHARIN SODIUM DIHYDRATE\SODIUM HYDROXIDE\SODIUM LAURYL SULFATE\SODIUM MAGNESIUM SILICATE\SODIUM MONOFLUOROPHOSPHATE\SORBITOL\WATER
     Indication: PRODUCT USED FOR UNKNOWN INDICATION
     Dosage: 1 PER DAY
     Route: 065
  65. BISOCOR [Concomitant]
     Active Substance: BISOPROLOL FUMARATE
     Dosage: 0.5 MG, QD
     Route: 065
  66. OTRIVIN [Concomitant]
     Active Substance: XYLOMETAZOLINE
  67. DIABETEX [Concomitant]
     Dosage: 850 MG, QD
  68. DIABETEX [Concomitant]
     Dosage: 850 MG, QD
  69. UROSIN [Concomitant]
     Active Substance: ALLOPURINOL
     Indication: HYPERURICAEMIA
     Dosage: UNK
     Route: 065
  70. UROSIN [Concomitant]
     Active Substance: ALLOPURINOL
     Dosage: 0.5 DF, MON, WED, FRI
  71. NEURONTIN [Concomitant]
     Active Substance: GABAPENTIN
     Dosage: 300 MG, QD
     Route: 065
  72. AUGMENTIN [Concomitant]
     Active Substance: AMOXICILLIN\CLAVULANATE POTASSIUM
     Dosage: 1 G, QD (3X1)
  73. CLYSMOL [Concomitant]
     Dosage: 1 DF, BID
  74. ALLOPURINOL. [Concomitant]
     Active Substance: ALLOPURINOL
     Indication: PRODUCT USED FOR UNKNOWN INDICATION
     Dosage: 300 MG, ON EVEN DAYS
     Route: 065
  75. ALLOPURINOL. [Concomitant]
     Active Substance: ALLOPURINOL
     Dosage: 300 MG, ON EVEN DAYS
     Route: 065
  76. JAKAFI [Suspect]
     Active Substance: RUXOLITINIB
     Indication: MYELOFIBROSIS
     Dosage: 15 MG, QD
     Route: 048
     Dates: start: 20111102
  77. JAKAFI [Suspect]
     Active Substance: RUXOLITINIB
     Dosage: UNK
     Route: 048
     Dates: start: 20111202
  78. XARELTO [Concomitant]
     Active Substance: RIVAROXABAN
     Indication: COAGULOPATHY
  79. NEXIUM [Concomitant]
     Active Substance: ESOMEPRAZOLE MAGNESIUM
     Indication: PRODUCT USED FOR UNKNOWN INDICATION
     Route: 065
  80. UROSIN [Concomitant]
     Active Substance: ALLOPURINOL
     Dosage: 300 MG, QD
  81. UROSIN [Concomitant]
     Active Substance: ALLOPURINOL
     Dosage: 0.5 DF, MON, WED, FRI
  82. UROSIN [Concomitant]
     Active Substance: ALLOPURINOL
     Dosage: 300 MG, QD
  83. CLYSMOL [Concomitant]
     Route: 065
  84. CLYSMOL [Concomitant]
     Dosage: 1 DF, BID
  85. CLYSMOL [Concomitant]
     Dosage: 1 DF, BID
  86. ALLOPURINOL. [Concomitant]
     Active Substance: ALLOPURINOL
     Dosage: 300 MG, ON EVEN DAYS
     Route: 065
  87. XEFO [Concomitant]
     Active Substance: LORNOXICAM
     Indication: PRODUCT USED FOR UNKNOWN INDICATION
     Dosage: 8 UNK, UNK
     Route: 065
  88. TRITTICO [Concomitant]
     Active Substance: TRAZODONE HYDROCHLORIDE
     Indication: PRODUCT USED FOR UNKNOWN INDICATION
     Dosage: 0.33 UNK, UNK
     Route: 065
  89. TRITTICO [Concomitant]
     Active Substance: TRAZODONE HYDROCHLORIDE
     Dosage: 0.33 DF, UNK

REACTIONS (48)
  - Emphysema [Unknown]
  - Spinal pain [Unknown]
  - Spinal osteoarthritis [Unknown]
  - Pleural effusion [Recovered/Resolved]
  - Splenomegaly [Unknown]
  - Aneurysm [Unknown]
  - Pacemaker generated arrhythmia [Recovered/Resolved]
  - Dyspnoea [Recovered/Resolved]
  - Mitral valve incompetence [Recovering/Resolving]
  - Aortic stenosis [Unknown]
  - Aortic arteriosclerosis [Unknown]
  - Blood glucose increased [Unknown]
  - Arteriosclerosis [Unknown]
  - Platelet count decreased [Unknown]
  - Blood pressure increased [Unknown]
  - Aneurysm [Recovered/Resolved]
  - Condition aggravated [Recovered/Resolved with Sequelae]
  - Palpitations [Recovered/Resolved]
  - Dyspnoea [Recovered/Resolved]
  - Groin pain [Recovered/Resolved]
  - Pneumonia [Recovering/Resolving]
  - Urinary tract infection [Unknown]
  - Infected dermal cyst [Recovering/Resolving]
  - Spinal pain [Unknown]
  - Atrial fibrillation [Recovering/Resolving]
  - Nausea [Recovered/Resolved]
  - Vertebral foraminal stenosis [Unknown]
  - Hypothyroidism [Unknown]
  - Sinus node dysfunction [Recovering/Resolving]
  - Pacemaker generated arrhythmia [Recovering/Resolving]
  - Klebsiella infection [Unknown]
  - Thrombocytopenia [Recovered/Resolved]
  - Blood lactate dehydrogenase increased [Unknown]
  - Escherichia urinary tract infection [Recovering/Resolving]
  - Abdominal pain [Recovered/Resolved]
  - Osteoarthritis [Unknown]
  - Hyperventilation [Recovered/Resolved]
  - Post procedural haemorrhage [Recovered/Resolved]
  - Thrombocytopenia [Recovered/Resolved]
  - Spinal pain [Recovered/Resolved]
  - Nausea [Unknown]
  - Hiatus hernia [Unknown]
  - Neuropathy peripheral [Unknown]
  - Haematoma [Unknown]
  - Oedema peripheral [Recovering/Resolving]
  - Spinal pain [Recovered/Resolved]
  - Pneumonia [Recovered/Resolved]
  - Anaemia [Recovering/Resolving]

NARRATIVE: CASE EVENT DATE: 20111128
